FAERS Safety Report 9508165 (Version 2)
Quarter: 2013Q3

REPORT INFORMATION
  Report Type: Spontaneous
  Country: US (occurrence: US)
  Receive Date: 20130909
  Receipt Date: 20130925
  Transmission Date: 20140515
  Serious: No
  Sender: FDA-Public Use
  Company Number: US-PFIZER INC-2013254970

PATIENT
  Age: 44 Year
  Sex: Female
  Weight: 72.56 kg

DRUGS (3)
  1. PREMARIN [Suspect]
     Indication: MENOPAUSAL SYMPTOMS
     Dosage: 1.25 MG, 2X/DAY
     Route: 048
     Dates: start: 1993
  2. PREMARIN [Suspect]
     Dosage: UNK
     Route: 048
  3. CHANTIX [Concomitant]
     Dosage: UNK

REACTIONS (2)
  - Anxiety [Unknown]
  - Feeling abnormal [Unknown]
